FAERS Safety Report 18204003 (Version 1)
Quarter: 2020Q3

REPORT INFORMATION
  Report Type: Spontaneous
  Country: US (occurrence: US)
  Receive Date: 20200827
  Receipt Date: 20200827
  Transmission Date: 20201103
  Serious: No
  Sender: FDA-Public Use
  Company Number: US-BIOGEN-2020BI00915112

PATIENT
  Age: 47 Year
  Sex: Female

DRUGS (1)
  1. TECFIDERA [Suspect]
     Active Substance: DIMETHYL FUMARATE
     Indication: MULTIPLE SCLEROSIS
     Route: 048
     Dates: start: 20160330

REACTIONS (5)
  - Fibula fracture [Unknown]
  - Erythema [Unknown]
  - Gait inability [Unknown]
  - Pyrexia [Unknown]
  - Tibia fracture [Unknown]

NARRATIVE: CASE EVENT DATE: 202007
